FAERS Safety Report 7592430-4 (Version None)
Quarter: 2011Q3

REPORT INFORMATION
  Report Type: 
  Country: None (occurrence: None)
  Receive Date: 20110706
  Receipt Date: 20110630
  Transmission Date: 20111222
  Serious: Yes (Other)
  Sender: FDA-Public Use
  Company Number: US-SANOFI-AVENTIS-2011SA042389

PATIENT
  Age: 78 Year
  Sex: Female

DRUGS (6)
  1. ASPIRIN [Concomitant]
  2. RANITIDINE [Concomitant]
     Indication: GASTRIC DISORDER
  3. AMLODIPINE [Concomitant]
  4. NOVOLIN 70/30 [Suspect]
     Dosage: NOVOLIN 70/30 48 UNITS IN AM AND 40 U AT NIGHT
  5. PLAVIX [Suspect]
     Route: 048
     Dates: start: 20100101, end: 20110601
  6. LOSARTAN POTASSIUM [Concomitant]

REACTIONS (7)
  - ANXIETY [None]
  - FATIGUE [None]
  - TRANSIENT ISCHAEMIC ATTACK [None]
  - ILL-DEFINED DISORDER [None]
  - PARAESTHESIA [None]
  - HYPOGLYCAEMIA [None]
  - FEELING HOT [None]
